FAERS Safety Report 11585921 (Version 1)
Quarter: 2015Q4

REPORT INFORMATION
  Report Type: Spontaneous
  Country: US (occurrence: US)
  Receive Date: 20151001
  Receipt Date: 20151001
  Transmission Date: 20160304
  Serious: No
  Sender: FDA-Public Use
  Company Number: US-ABBVIE-14P-163-1292808-00

PATIENT
  Age: 51 Year
  Sex: Female
  Weight: 153.45 kg

DRUGS (5)
  1. TEKTRNA [Concomitant]
     Indication: HYPERTENSION
  2. ZEMPLAR [Suspect]
     Active Substance: PARICALCITOL
     Indication: VITAMIN D DECREASED
     Route: 065
     Dates: start: 20140924, end: 20140928
  3. METOPROLOL [Concomitant]
     Active Substance: METOPROLOL
     Indication: HYPERTENSION
  4. ZEMPLAR [Suspect]
     Active Substance: PARICALCITOL
     Route: 065
     Dates: start: 20141004
  5. VITAMIN D [Concomitant]
     Active Substance: CHOLECALCIFEROL
     Indication: VITAMIN D DECREASED

REACTIONS (4)
  - Vomiting [Recovered/Resolved]
  - Diarrhoea [Recovered/Resolved]
  - Headache [Recovered/Resolved]
  - Dizziness [Recovered/Resolved]

NARRATIVE: CASE EVENT DATE: 20140929
